FAERS Safety Report 15698707 (Version 1)
Quarter: 2018Q4

REPORT INFORMATION
  Report Type: Spontaneous
  Country: US (occurrence: US)
  Receive Date: 20181127
  Receipt Date: 20181127
  Transmission Date: 20190205
  Serious: Yes (Other)
  Sender: FDA-Public Use
  Company Number: None

PATIENT
  Age: 3 Year
  Sex: Female
  Weight: 17.1 kg

DRUGS (1)
  1. MIRALAX [Suspect]
     Active Substance: POLYETHYLENE GLYCOL 3350
     Indication: CONSTIPATION
     Dosage: ?          QUANTITY:2 CAPFUL;?
     Route: 048
     Dates: start: 20180916, end: 20181105

REACTIONS (5)
  - Anger [None]
  - Product administered to patient of inappropriate age [None]
  - Product complaint [None]
  - Crying [None]
  - Aggression [None]

NARRATIVE: CASE EVENT DATE: 20180929
